FAERS Safety Report 19294690 (Version 3)
Quarter: 2021Q2

REPORT INFORMATION
  Report Type: Other
  Country: DE (occurrence: DE)
  Receive Date: 20210524
  Receipt Date: 20210616
  Transmission Date: 20210717
  Serious: Yes (Hospitalization, Congenital Anomaly)
  Sender: FDA-Public Use
  Company Number: DE-ROCHE-2830343

PATIENT
  Age: 1 Month
  Sex: Male
  Weight: 1.57 kg

DRUGS (13)
  1. PCV13 VACCINE [Concomitant]
     Dates: start: 20210422
  2. OCRELIZUMAB. [Suspect]
     Active Substance: OCRELIZUMAB
     Indication: PRODUCT USED FOR UNKNOWN INDICATION
     Dosage: DATE OF SECOND ADMINISTRATION: 14/APR/2020 (300 MG)
     Route: 050
     Dates: start: 20200331, end: 20200414
  3. D?MANNOSE [Concomitant]
     Dates: start: 20170715
  4. CEFURAX [Concomitant]
     Active Substance: CEFUROXIME AXETIL
     Dates: start: 20201001, end: 20201006
  5. HAEMOPHILUS B CONJUGATE VACCINE NOS [Concomitant]
     Active Substance: HAEMOPHILUS B CONJUGATE VACCINE
     Dates: start: 20210422
  6. HEPARIN [Concomitant]
     Active Substance: HEPARIN SODIUM
     Dates: start: 20200824, end: 20210126
  7. CLOTRIMAZOLE. [Concomitant]
     Active Substance: CLOTRIMAZOLE
     Dates: start: 20210128, end: 20210129
  8. HEPATITIS B VACCINE [Concomitant]
     Active Substance: HEPATITIS B VIRUS VACCINE
     Dates: start: 20210422
  9. MAGNESIUM [Concomitant]
     Active Substance: MAGNESIUM
     Dates: start: 20210126, end: 20210202
  10. DTAP [Concomitant]
     Active Substance: DIPHTHERIA AND TETANUS TOXOIDS AND ACELLULAR PERTUSSIS VACCINE ADSORBED
     Dates: start: 20210422
  11. ROTAVIRUS VACCINE [Concomitant]
     Active Substance: HUMAN ROTAVIRUS A
     Dates: start: 20210422
  12. POLIOMYELITIS VACCINE [Concomitant]
     Active Substance: POLIOMYELITIS VACCINE
     Dates: start: 20210422
  13. MAGNESIUM [Concomitant]
     Active Substance: MAGNESIUM
     Dates: start: 20200824

REACTIONS (3)
  - Inguinal hernia [Recovered/Resolved]
  - Foetal exposure during pregnancy [Unknown]
  - Haemangioma [Recovered/Resolved]

NARRATIVE: CASE EVENT DATE: 20210309
